FAERS Safety Report 8085041-8 (Version None)
Quarter: 2012Q1

REPORT INFORMATION
  Report Type: 
  Country: None (occurrence: None)
  Receive Date: 20120128
  Receipt Date: 20110314
  Transmission Date: 20120608
  Serious: No
  Sender: FDA-Public Use
  Company Number: US-ABBOTT-11P-163-0711222-00

PATIENT
  Age: 64 Year
  Sex: Male

DRUGS (15)
  1. LASIX [Concomitant]
     Indication: PRODUCT USED FOR UNKNOWN INDICATION
  2. TOPROL-XL [Concomitant]
     Indication: ATRIAL FIBRILLATION
  3. WARFARIN SODIUM [Concomitant]
     Indication: PRODUCT USED FOR UNKNOWN INDICATION
     Dosage: 5MG 5 DAYS, 7.5MG MON + FRI
  4. LORATADINE [Concomitant]
     Indication: HYPERSENSITIVITY
  5. ATARAX [Concomitant]
     Indication: PSORIASIS
  6. PRILOSEC [Concomitant]
     Indication: GASTROOESOPHAGEAL REFLUX DISEASE
  7. ATARAX [Concomitant]
     Indication: PRURITUS
     Dosage: AT BEDTIME
  8. CIALIS [Concomitant]
     Indication: PRODUCT USED FOR UNKNOWN INDICATION
  9. KLOR-CON [Concomitant]
     Indication: PRODUCT USED FOR UNKNOWN INDICATION
  10. POTASSIUM CITRATE [Concomitant]
     Indication: PRODUCT USED FOR UNKNOWN INDICATION
  11. HUMIRA [Suspect]
     Indication: PSORIASIS
     Dates: start: 20101110
  12. SIMVASTATIN [Concomitant]
     Indication: BLOOD CHOLESTEROL INCREASED
  13. DIPROLENE [Concomitant]
     Indication: PSORIASIS
  14. ASPIRIN [Concomitant]
     Indication: PRODUCT USED FOR UNKNOWN INDICATION
  15. ENALAPRIL [Concomitant]
     Indication: CARDIAC DISORDER

REACTIONS (2)
  - ARTHRALGIA [None]
  - PSORIATIC ARTHROPATHY [None]
